FAERS Safety Report 6713108-2 (Version None)
Quarter: 2010Q2

REPORT INFORMATION
  Report Type: 
  Country: None (occurrence: None)
  Receive Date: 20100506
  Receipt Date: 20091117
  Transmission Date: 20101027
  Serious: No
  Sender: FDA-Public Use
  Company Number: A0822154A

PATIENT
  Sex: Female

DRUGS (2)
  1. AMOXICILLIN [Suspect]
     Dates: end: 20090702
  2. CLARITIN [Suspect]
     Indication: MULTIPLE ALLERGIES

REACTIONS (1)
  - HEADACHE [None]
